FAERS Safety Report 6423829-7 (Version None)
Quarter: 2009Q4

REPORT INFORMATION
  Report Type: 
  Country: None (occurrence: None)
  Receive Date: 20091102
  Receipt Date: 20091023
  Transmission Date: 20100525
  Serious: Yes (Life-Threatening)
  Sender: FDA-Public Use
  Company Number: GB-PFIZER INC-2009196710

PATIENT
  Age: 30 Year
  Sex: Female
  Weight: 68.94 kg

DRUGS (4)
  1. CHAMPIX [Suspect]
     Indication: SMOKING CESSATION THERAPY
     Dosage: UNK
     Route: 048
     Dates: start: 20090220, end: 20090314
  2. NORDETTE-28 [Concomitant]
     Dosage: UNK
  3. OTOMIZE [Concomitant]
     Dosage: UNK
  4. REVAXIS [Concomitant]
     Dosage: UNK

REACTIONS (3)
  - ACUTE PSYCHOSIS [None]
  - SELF-INJURIOUS IDEATION [None]
  - SUICIDAL IDEATION [None]
